FAERS Safety Report 6424904-3 (Version None)
Quarter: 2009Q4

REPORT INFORMATION
  Report Type: 
  Country: None (occurrence: None)
  Receive Date: 20091103
  Receipt Date: 20091021
  Transmission Date: 20100525
  Serious: Yes (Hospitalization, Other)
  Sender: FDA-Public Use
  Company Number: US-ELI_LILLY_AND_COMPANY-US200909007135

PATIENT
  Age: 65 Year
  Sex: Female

DRUGS (3)
  1. FORTEO [Suspect]
     Indication: OSTEOPOROSIS
     Dates: start: 20010101, end: 20030101
  2. CALCIUM [Concomitant]
  3. FOSAMAX [Concomitant]
     Dates: start: 20030101

REACTIONS (8)
  - BONE DENSITY DECREASED [None]
  - FALL [None]
  - FEMUR FRACTURE [None]
  - FRACTURE [None]
  - INTERVERTEBRAL DISC PROTRUSION [None]
  - LIMB CRUSHING INJURY [None]
  - LUMBAR VERTEBRAL FRACTURE [None]
  - RESORPTION BONE INCREASED [None]
